FAERS Safety Report 6171212-4 (Version None)
Quarter: 2009Q2

REPORT INFORMATION
  Report Type: 
  Country: None (occurrence: None)
  Receive Date: 20090428
  Receipt Date: 20090428
  Transmission Date: 20091009
  Serious: No
  Sender: FDA-Public Use
  Company Number: None

PATIENT
  Age: 6 Year
  Sex: Female
  Weight: 24.0406 kg

DRUGS (2)
  1. AMOXICILLIN [Suspect]
     Indication: SCARLET FEVER
     Dosage: 1 1/2 TEASPOONS ONCE EVERY 12 HOUR PO, 18 DOSES
     Route: 048
     Dates: start: 20090411, end: 20090420
  2. AMOXICILLIN [Suspect]
     Indication: STREPTOCOCCAL INFECTION
     Dosage: 1 1/2 TEASPOONS ONCE EVERY 12 HOUR PO, 18 DOSES
     Route: 048
     Dates: start: 20090411, end: 20090420

REACTIONS (1)
  - URTICARIA [None]
